FAERS Safety Report 7627018-X (Version None)
Quarter: 2011Q3

REPORT INFORMATION
  Report Type: 
  Country: None (occurrence: None)
  Receive Date: 20110714
  Receipt Date: 20110601
  Transmission Date: 20111222
  Serious: Yes (Other)
  Sender: FDA-Public Use
  Company Number: AE-2006

PATIENT

DRUGS (1)
  1. HCB APAP TABLETS 10/30MG -SOVEREIGN/BOCA PHARMACAL [Suspect]
     Indication: PAIN MANAGEMENT

REACTIONS (3)
  - DIZZINESS [None]
  - CHEST PAIN [None]
  - DYSPNOEA [None]
